FAERS Safety Report 7221409-7 (Version None)
Quarter: 2010Q4

REPORT INFORMATION
  Report Type: 
  Country: None (occurrence: None)
  Receive Date: 20101227
  Receipt Date: 20101217
  Transmission Date: 20110411
  Serious: Yes (Hospitalization)
  Sender: FDA-Public Use
  Company Number: CA-144956

PATIENT
  Age: 72 Year
  Sex: Male
  Weight: 75 kg

DRUGS (10)
  1. WINRHO [Suspect]
     Indication: IDIOPATHIC THROMBOCYTOPENIC PURPURA
     Dosage: (120 UG INTRAVENOUS (NOT OTHERWISE SPECIFIED)) (3000 UG INTRAVENOUS (NOT OTHERWISE SPECIFIED)) (600
     Route: 042
     Dates: start: 20100329, end: 20100329
  2. WINRHO [Suspect]
     Indication: IDIOPATHIC THROMBOCYTOPENIC PURPURA
     Dosage: (120 UG INTRAVENOUS (NOT OTHERWISE SPECIFIED)) (3000 UG INTRAVENOUS (NOT OTHERWISE SPECIFIED)) (600
     Route: 042
     Dates: start: 20100329, end: 20100329
  3. WINRHO [Suspect]
     Indication: IDIOPATHIC THROMBOCYTOPENIC PURPURA
     Dosage: (120 UG INTRAVENOUS (NOT OTHERWISE SPECIFIED)) (3000 UG INTRAVENOUS (NOT OTHERWISE SPECIFIED)) (600
     Route: 042
     Dates: start: 20100329, end: 20100329
  4. ASPIRIN [Concomitant]
  5. TERAZOSIN HCL [Concomitant]
  6. LIPITOR [Concomitant]
  7. LEVOTHYROXINE SODIUM [Concomitant]
  8. ACEBUTOLOL [Concomitant]
  9. ARTHROTEC [Concomitant]
  10. PREDNISONE [Concomitant]

REACTIONS (5)
  - BONE PAIN [None]
  - INTRAVASCULAR HAEMOLYSIS [None]
  - NAUSEA [None]
  - RHESUS ANTIBODIES POSITIVE [None]
  - TRANSFUSION REACTION [None]
